FAERS Safety Report 13158709 (Version 1)
Quarter: 2017Q1

REPORT INFORMATION
  Report Type: Spontaneous
  Country: US (occurrence: US)
  Receive Date: 20170127
  Receipt Date: 20170127
  Transmission Date: 20170428
  Serious: Yes (Other)
  Sender: FDA-Public Use
  Company Number: None

PATIENT
  Age: 78 Year
  Sex: Male
  Weight: 83.92 kg

DRUGS (1)
  1. LEVOFLOXACIN 500MG [Suspect]
     Active Substance: LEVOFLOXACIN
     Indication: PNEUMONIA
     Dates: start: 20170106, end: 20170110

REACTIONS (6)
  - Tendon disorder [None]
  - Nuclear magnetic resonance imaging abnormal [None]
  - Pain [None]
  - Tenderness [None]
  - Pain in extremity [None]
  - Tendon rupture [None]
